FAERS Safety Report 13806885 (Version 5)
Quarter: 2018Q3

REPORT INFORMATION
  Report Type: Report from Study
  Country: US (occurrence: US)
  Receive Date: 20170728
  Receipt Date: 20180821
  Transmission Date: 20181010
  Serious: Yes (Other)
  Sender: FDA-Public Use
  Company Number: US-AMGEN-USASL2017105460

PATIENT
  Age: 79 Year
  Sex: Female
  Weight: 157 kg

DRUGS (2)
  1. REPATHA [Suspect]
     Active Substance: EVOLOCUMAB
     Indication: HYPERCHOLESTEROLAEMIA
     Dosage: 140 MG, Q2WK
     Route: 058
     Dates: start: 201704
  2. REPATHA [Suspect]
     Active Substance: EVOLOCUMAB
     Indication: LOW DENSITY LIPOPROTEIN INCREASED

REACTIONS (12)
  - Myocardial infarction [Unknown]
  - Sensory disturbance [Unknown]
  - Cough [Unknown]
  - Glossitis [Unknown]
  - Lip exfoliation [Unknown]
  - Pain [Unknown]
  - Rhinorrhoea [Unknown]
  - Tongue exfoliation [Unknown]
  - Rash [Unknown]
  - Swollen tongue [Recovered/Resolved]
  - Pruritus [Unknown]
  - Pain in extremity [Unknown]

NARRATIVE: CASE EVENT DATE: 2017
